FAERS Safety Report 7633937-0 (Version None)
Quarter: 2011Q3

REPORT INFORMATION
  Report Type: 
  Country: None (occurrence: None)
  Receive Date: 20110725
  Receipt Date: 20110719
  Transmission Date: 20111222
  Serious: Yes (Congenital Anomaly, Other)
  Sender: FDA-Public Use
  Company Number: BE-BRISTOL-MYERS SQUIBB COMPANY-15915283

PATIENT
  Age: 2 Month
  Sex: Male
  Weight: 3 kg

DRUGS (2)
  1. ORENCIA [Suspect]
     Route: 064
  2. PIROXICAM [Suspect]

REACTIONS (2)
  - SKULL MALFORMATION [None]
  - SMALL FOR DATES BABY [None]
